FAERS Safety Report 6509791-7 (Version None)
Quarter: 2009Q4

REPORT INFORMATION
  Report Type: 
  Country: None (occurrence: None)
  Receive Date: 20091222
  Receipt Date: 20091212
  Transmission Date: 20100525
  Serious: Yes (Hospitalization, Other)
  Sender: FDA-Public Use
  Company Number: US-AMGEN-QUU380109

PATIENT
  Sex: Female

DRUGS (1)
  1. ENBREL [Suspect]
     Indication: RHEUMATOID ARTHRITIS
     Route: 058
     Dates: start: 20070101

REACTIONS (7)
  - ASTHENIA [None]
  - DYSPNOEA [None]
  - IMMUNE SYSTEM DISORDER [None]
  - LUNG INFECTION PSEUDOMONAL [None]
  - OXYGEN SUPPLEMENTATION [None]
  - PNEUMONIA [None]
  - PSEUDOMONAS INFECTION [None]
